FAERS Safety Report 5000043-3 (Version None)
Quarter: 2006Q2

REPORT INFORMATION
  Report Type: 
  Country: None (occurrence: None)
  Receive Date: 20060501
  Receipt Date: 20060419
  Transmission Date: 20061013
  Serious: Yes (Other)
  Sender: FDA-Public Use
  Company Number: 2006053826

PATIENT
  Age: 79 Year
  Sex: Male

DRUGS (2)
  1. CAMPTOSAR [Suspect]
     Indication: COLORECTAL CANCER
     Dosage: 180 MG/M2 (180 MG/M2, 1 IN 15 D)
     Dates: start: 20051003
  2. FLUOROURACIL [Concomitant]

REACTIONS (1)
  - HAEMOLYTIC ANAEMIA [None]
